FAERS Safety Report 5558396-3 (Version None)
Quarter: 2007Q4

REPORT INFORMATION
  Report Type: 
  Country: None (occurrence: None)
  Receive Date: 20071130
  Receipt Date: 20070910
  Transmission Date: 20080405
  Serious: No
  Sender: FDA-Public Use
  Company Number: US200709001596

PATIENT
  Age: 57 Year
  Sex: Male
  Weight: 102 kg

DRUGS (6)
  1. BYETTA [Suspect]
     Indication: TYPE 2 DIABETES MELLITUS
     Dosage: 5 UG, 2/D, SUBCUTANEOUS;  10 UG, 2/D, SUBCUTANEOUS
     Route: 058
     Dates: start: 20070701, end: 20070801
  2. BYETTA [Suspect]
     Indication: TYPE 2 DIABETES MELLITUS
     Dosage: 5 UG, 2/D, SUBCUTANEOUS;  10 UG, 2/D, SUBCUTANEOUS
     Route: 058
     Dates: start: 20070801, end: 20070908
  3. LANTUS [Concomitant]
  4. APIDRA [Concomitant]
  5. GLUCOPHAGE [Concomitant]
  6. SYMLIN [Concomitant]

REACTIONS (7)
  - BLOOD GLUCOSE DECREASED [None]
  - HICCUPS [None]
  - HYPOAESTHESIA [None]
  - NAUSEA [None]
  - NON-CARDIAC CHEST PAIN [None]
  - SOMNOLENCE [None]
  - WEIGHT DECREASED [None]
